FAERS Safety Report 4296569-0 (Version None)
Quarter: 2004Q1

REPORT INFORMATION
  Report Type: 
  Country: None (occurrence: None)
  Receive Date: 20040217
  Receipt Date: 20040210
  Transmission Date: 20041129
  Serious: Yes (Other)
  Sender: FDA-Public Use
  Company Number: US-GLAXOSMITHKLINE-A0497715A

PATIENT
  Age: 31 Year
  Sex: Male

DRUGS (5)
  1. PAXIL [Suspect]
     Indication: PANIC DISORDER
     Dosage: 40MG PER DAY
     Route: 048
     Dates: end: 20040202
  2. VALIUM [Concomitant]
  3. NEXIUM [Concomitant]
  4. MULTI-VITAMIN [Concomitant]
  5. ASPIRIN [Concomitant]

REACTIONS (7)
  - ABNORMAL DREAMS [None]
  - DIZZINESS [None]
  - HOMICIDAL IDEATION [None]
  - INSOMNIA [None]
  - NAUSEA [None]
  - PSYCHOTIC DISORDER [None]
  - SYNCOPE [None]
